FAERS Safety Report 6302534-1 (Version None)
Quarter: 2009Q3

REPORT INFORMATION
  Report Type: 
  Country: None (occurrence: None)
  Receive Date: 20090810
  Receipt Date: 20090804
  Transmission Date: 20100115
  Serious: Yes (Other)
  Sender: FDA-Public Use
  Company Number: JP-AVENTIS-200911953JP

PATIENT
  Age: 87 Year
  Sex: Female
  Weight: 35 kg

DRUGS (8)
  1. CLEXANE [Suspect]
     Indication: HIP SURGERY
     Route: 058
     Dates: start: 20090628, end: 20090628
  2. OMEPRAL [Concomitant]
     Route: 048
  3. GASMOTIN [Concomitant]
     Route: 048
  4. PRIMPERAN                          /00041901/ [Concomitant]
     Route: 048
  5. CEROCRAL [Concomitant]
     Route: 048
  6. SIGMART [Concomitant]
     Indication: ANGINA PECTORIS
     Route: 048
  7. FOIPAN [Concomitant]
     Route: 048
  8. EXCELASE [Concomitant]
     Route: 048

REACTIONS (5)
  - ANAEMIA [None]
  - HAEMATOCRIT DECREASED [None]
  - HAEMOGLOBIN DECREASED [None]
  - HAEMORRHAGE [None]
  - RED BLOOD CELL COUNT DECREASED [None]
